FAERS Safety Report 7984149-2 (Version None)
Quarter: 2011Q4

REPORT INFORMATION
  Report Type: 
  Country: None (occurrence: None)
  Receive Date: 20111216
  Receipt Date: 20111213
  Transmission Date: 20120403
  Serious: No
  Sender: FDA-Public Use
  Company Number: US-PFIZER INC-2011270169

PATIENT
  Sex: Female
  Weight: 81.633 kg

DRUGS (16)
  1. MECLIZINE HCL [Suspect]
     Indication: DIZZINESS
     Dosage: UNK
  2. GABAPENTIN [Suspect]
     Indication: FIBROMYALGIA
     Dosage: UNK
  3. VESICARE [Concomitant]
     Indication: INCONTINENCE
  4. IMITREX [Concomitant]
     Indication: MIGRAINE
     Dosage: UNK
  5. AMBIEN CR [Concomitant]
     Dosage: UNK
  6. VESICARE [Concomitant]
     Indication: CYSTITIS INTERSTITIAL
     Dosage: UNK
  7. NIFEDIPINE [Suspect]
     Indication: NEUROPATHY PERIPHERAL
     Dosage: UNK
  8. ULTRAM [Concomitant]
     Indication: PAIN
     Dosage: UNK
  9. PROPRANOLOL [Concomitant]
     Indication: DYSKINESIA
     Dosage: UNK
  10. PRAVASTATIN [Concomitant]
     Indication: BLOOD CHOLESTEROL INCREASED
     Dosage: UNK
  11. SOMA [Concomitant]
     Dosage: UNK
  12. NIFEDIPINE [Suspect]
     Indication: HYPERTENSION
  13. SYNTHROID [Concomitant]
     Indication: HYPOTHYROIDISM
     Dosage: UNK
  14. NIFEDIPINE [Suspect]
     Indication: REYNOLD'S SYNDROME
  15. CYMBALTA [Concomitant]
     Indication: DEPRESSION
     Dosage: UNK
  16. NEXIUM [Concomitant]
     Indication: GASTROOESOPHAGEAL REFLUX DISEASE
     Dosage: UNK

REACTIONS (1)
  - DRUG INEFFECTIVE [None]
